FAERS Safety Report 12555058 (Version 2)
Quarter: 2017Q1

REPORT INFORMATION
  Report Type: Spontaneous
  Country: US (occurrence: US)
  Receive Date: 20160714
  Receipt Date: 20170103
  Transmission Date: 20170428
  Serious: Yes (Other)
  Sender: FDA-Public Use
  Company Number: US-ALEXION PHARMACEUTICALS INC.-A201604980

PATIENT
  Age: 36 Year
  Sex: Female
  Weight: 74.38 kg

DRUGS (2)
  1. IRON COMPOUND [Concomitant]
     Indication: PRODUCT USED FOR UNKNOWN INDICATION
     Dosage: UNK
     Route: 065
  2. SOLIRIS [Suspect]
     Active Substance: ECULIZUMAB
     Indication: PAROXYSMAL NOCTURNAL HAEMOGLOBINURIA
     Dosage: UNK UNK, Q2W
     Route: 042
     Dates: start: 20101116

REACTIONS (6)
  - Pancytopenia [Unknown]
  - Syncope [Unknown]
  - Back pain [Unknown]
  - Upper respiratory tract infection [Unknown]
  - Aplastic anaemia [Unknown]
  - Fatigue [Unknown]

NARRATIVE: CASE EVENT DATE: 20120802
